FAERS Safety Report 8555634-X (Version None)
Quarter: 2012Q3

REPORT INFORMATION
  Report Type: 
  Country: None (occurrence: None)
  Receive Date: 20120731
  Receipt Date: 20120717
  Transmission Date: 20120928
  Serious: Yes (Hospitalization)
  Sender: FDA-Public Use
  Company Number: HR-ELI_LILLY_AND_COMPANY-HR201207005511

PATIENT
  Age: 16 Year
  Sex: Female

DRUGS (3)
  1. PROZAC [Suspect]
     Indication: ABNORMAL BEHAVIOUR
     Dosage: 120 MG, UNKNOWN
     Route: 048
  2. PROMAZINE HYDROCHLORIDE [Concomitant]
     Indication: ABNORMAL BEHAVIOUR
     Dosage: 125 MG, UNK
  3. ZYPREXA [Suspect]
     Indication: ABNORMAL BEHAVIOUR
     Dosage: 5 MG, UNKNOWN
     Route: 048

REACTIONS (3)
  - SOMNOLENCE [None]
  - TOXICITY TO VARIOUS AGENTS [None]
  - MULTIPLE DRUG OVERDOSE INTENTIONAL [None]
